FAERS Safety Report 5927499-3 (Version None)
Quarter: 2008Q4

REPORT INFORMATION
  Report Type: 
  Country: None (occurrence: None)
  Receive Date: 20081021
  Receipt Date: 20081021
  Transmission Date: 20090506
  Serious: Yes (Hospitalization)
  Sender: FDA-Public Use
  Company Number: None

PATIENT
  Sex: Female
  Weight: 42 kg

DRUGS (1)
  1. CISPLATIN [Suspect]
     Dosage: 143 MG
     Dates: end: 20080825

REACTIONS (3)
  - DEHYDRATION [None]
  - METABOLIC DISORDER [None]
  - PAIN [None]
